FAERS Safety Report 6548655-X (Version None)
Quarter: 2010Q1

REPORT INFORMATION
  Report Type: 
  Country: None (occurrence: None)
  Receive Date: 20100124
  Receipt Date: 20091008
  Transmission Date: 20100710
  Serious: No
  Sender: FDA-Public Use
  Company Number: US-ALLERGAN-0913966US

PATIENT
  Sex: Female

DRUGS (4)
  1. RESTASIS [Suspect]
     Indication: DRY EYE
     Dosage: UNK
     Dates: start: 20091006, end: 20091008
  2. COMBIGAN [Concomitant]
  3. LUMIGAN [Concomitant]
  4. DORZOLAMIDE HYDROCHLORIDE [Concomitant]

REACTIONS (2)
  - ERYTHEMA OF EYELID [None]
  - RASH [None]
